FAERS Safety Report 16823008 (Version 1)
Quarter: 2019Q3

REPORT INFORMATION
  Report Type: Spontaneous
  Country: ES (occurrence: ES)
  Receive Date: 20190918
  Receipt Date: 20190918
  Transmission Date: 20191005
  Serious: Yes (Other)
  Sender: FDA-Public Use
  Company Number: ES-MYLANLABS-2019M1087129

PATIENT
  Age: 33 Year
  Sex: Male

DRUGS (7)
  1. PROPOFOL. [Concomitant]
     Active Substance: PROPOFOL
     Indication: SEDATIVE THERAPY
     Dosage: INDICATED SHOULD ONLY BE ADMINISTERED DURING THE NIGHT
     Route: 065
  2. RISPERIDONE. [Suspect]
     Active Substance: RISPERIDONE
     Indication: DELIRIUM
     Dosage: ROUTE: ADMINISTERED VIA THE NASOGASTRIC TUBE
     Route: 050
  3. SERTRALINE [Suspect]
     Active Substance: SERTRALINE HYDROCHLORIDE
     Indication: DELIRIUM
     Dosage: ROUTE: ADMINISTERED VIA THE NASOGASTRIC TUBE
     Route: 050
  4. TIAPRIDE [Concomitant]
     Active Substance: TIAPRIDE
     Dosage: CONTINUOUS INFUSION: 600 MG IN 500 ML OF PHYSIOLOGICAL SERUM AT 21 ML/HOUR
     Route: 041
  5. TIAPRIDE [Concomitant]
     Active Substance: TIAPRIDE
     Indication: DELIRIUM
     Dosage: 100 MILLIGRAM, Q6H
     Route: 042
  6. PROPOFOL. [Concomitant]
     Active Substance: PROPOFOL
     Indication: DELIRIUM
  7. DIAZEPAM. [Suspect]
     Active Substance: DIAZEPAM
     Indication: DELIRIUM
     Dosage: ROUTE: ADMINISTERED VIA THE NASOGASTRIC TUBE
     Route: 050

REACTIONS (1)
  - Drug ineffective [Unknown]
